FAERS Safety Report 6308753-2 (Version None)
Quarter: 2009Q3

REPORT INFORMATION
  Report Type: 
  Country: None (occurrence: None)
  Receive Date: 20090813
  Receipt Date: 20080414
  Transmission Date: 20100115
  Serious: No
  Sender: FDA-Public Use
  Company Number: US-ALLERGAN-0804415US

PATIENT
  Sex: Female

DRUGS (7)
  1. COMBIGAN [Suspect]
     Indication: GLAUCOMA
     Dosage: UNK, UNKNOWN
     Route: 047
     Dates: start: 20080101
  2. SOTALOL HYDROCHLORIDE [Concomitant]
  3. DIGOXIN [Concomitant]
  4. BONIVA [Concomitant]
  5. NORVASK [Concomitant]
  6. HYDROXYZINE HYDROCHLORIDE [Concomitant]
  7. XALATAN [Concomitant]

REACTIONS (1)
  - DRY MOUTH [None]
